FAERS Safety Report 13272918 (Version 1)
Quarter: 2017Q1

REPORT INFORMATION
  Report Type: Spontaneous
  Country: US (occurrence: US)
  Receive Date: 20170227
  Receipt Date: 20170227
  Transmission Date: 20170428
  Serious: No
  Sender: FDA-Public Use
  Company Number: US-BAYER-2017-036974

PATIENT
  Age: 75 Year
  Sex: Female
  Weight: 57 kg

DRUGS (3)
  1. MUCINEX [Concomitant]
     Active Substance: GUAIFENESIN
     Dosage: UNK
  2. ALEVE [Suspect]
     Active Substance: NAPROXEN SODIUM
     Indication: PAIN
     Dosage: 1 DF, UNK
     Route: 048
     Dates: start: 201701
  3. DIAZEPAM. [Concomitant]
     Active Substance: DIAZEPAM
     Dosage: UNK

REACTIONS (4)
  - Therapeutic response unexpected [Unknown]
  - Productive cough [Not Recovered/Not Resolved]
  - Dizziness [Unknown]
  - Wheezing [Unknown]

NARRATIVE: CASE EVENT DATE: 20170223
